FAERS Safety Report 25916964 (Version 1)
Quarter: 2025Q4

REPORT INFORMATION
  Report Type: Report from Study
  Country: PE (occurrence: PE)
  Receive Date: 20251014
  Receipt Date: 20251014
  Transmission Date: 20260117
  Serious: Yes (Other)
  Sender: JOHNSON AND JOHNSON
  Company Number: PE-JNJFOC-20251016565

PATIENT
  Age: 57 Year
  Sex: Female

DRUGS (1)
  1. SIMPONI [Suspect]
     Active Substance: GOLIMUMAB
     Indication: Ankylosing spondylitis
     Dosage: LAST ADMINISTERED 28-JUL-2025
     Route: 058
     Dates: start: 20241125

REACTIONS (2)
  - Ankylosing spondylitis [Unknown]
  - Infection [Not Recovered/Not Resolved]
